FAERS Safety Report 8374065-9 (Version None)
Quarter: 2012Q2

REPORT INFORMATION
  Report Type: 
  Country: None (occurrence: None)
  Receive Date: 20120521
  Receipt Date: 20120517
  Transmission Date: 20120825
  Serious: Yes (Death)
  Sender: FDA-Public Use
  Company Number: US-GILEAD-2012-0054986

PATIENT
  Sex: Female

DRUGS (2)
  1. LETAIRIS [Suspect]
     Indication: PULMONARY HYPERTENSION
     Dosage: 10 MG, UNK
     Route: 048
     Dates: start: 20090701
  2. LETAIRIS [Suspect]
     Indication: SCLERODERMA

REACTIONS (5)
  - SEPTIC SHOCK [None]
  - SCLERODERMA [None]
  - OESOPHAGEAL CARCINOMA [None]
  - DYSPHAGIA [None]
  - PNEUMONIA ASPIRATION [None]
